FAERS Safety Report 7460161-7 (Version None)
Quarter: 2011Q2

REPORT INFORMATION
  Report Type: 
  Country: None (occurrence: None)
  Receive Date: 20110505
  Receipt Date: 20110421
  Transmission Date: 20111010
  Serious: Yes (Other)
  Sender: FDA-Public Use
  Company Number: US-JNJFOC-20110411118

PATIENT
  Sex: Female

DRUGS (1)
  1. DURAGESIC-50 [Suspect]
     Indication: PAIN
     Dosage: 100 UG/HR AND 50 UG/HR
     Route: 062

REACTIONS (2)
  - FIBROMYALGIA [None]
  - DIABETES MELLITUS [None]
